FAERS Safety Report 8024991-5 (Version None)
Quarter: 2012Q1

REPORT INFORMATION
  Report Type: 
  Country: None (occurrence: None)
  Receive Date: 20120105
  Receipt Date: 20111227
  Transmission Date: 20120608
  Serious: Yes (Hospitalization)
  Sender: FDA-Public Use
  Company Number: DE-ROCHE-1027104

PATIENT
  Sex: Male
  Weight: 83 kg

DRUGS (31)
  1. LUCENTIS [Suspect]
     Route: 050
     Dates: start: 20081209
  2. LUCENTIS [Suspect]
     Route: 050
     Dates: start: 20090702
  3. LUCENTIS [Suspect]
     Route: 050
     Dates: start: 20100601
  4. VITALUX PLUS (GERMANY) [Suspect]
     Indication: AGE-RELATED MACULAR DEGENERATION
     Route: 048
     Dates: start: 20040601
  5. LUCENTIS [Suspect]
     Route: 050
     Dates: start: 20100503
  6. LISINOPRIL [Concomitant]
     Dates: start: 20060201
  7. FORMOTEROL FUMARATE [Concomitant]
     Dates: start: 20050101
  8. LUCENTIS [Suspect]
     Route: 050
     Dates: start: 20070726
  9. LUCENTIS [Suspect]
     Route: 050
     Dates: start: 20090604
  10. BUDESONIDE [Concomitant]
     Dates: start: 20080101
  11. LUCENTIS [Suspect]
     Route: 050
     Dates: start: 20070904
  12. LUCENTIS [Suspect]
     Route: 050
     Dates: start: 20081111
  13. LUCENTIS [Suspect]
     Route: 050
     Dates: start: 20100325
  14. METOPROLOL SUCCINATE [Concomitant]
     Dates: start: 19980101
  15. ACETAZOLAMIDE [Concomitant]
     Dates: start: 20110701, end: 20111117
  16. LUCENTIS [Suspect]
     Route: 050
     Dates: start: 20090914
  17. LUCENTIS [Suspect]
     Route: 050
     Dates: start: 20091130
  18. LUCENTIS [Suspect]
     Route: 050
     Dates: start: 20110718
  19. LUCENTIS [Suspect]
     Route: 050
     Dates: start: 20110517
  20. LUCENTIS [Suspect]
     Route: 050
  21. LUCENTIS [Suspect]
     Route: 050
     Dates: start: 20090423
  22. GODAMED [Concomitant]
     Dates: start: 19900101
  23. MOXONIDINE [Concomitant]
     Dates: start: 20031201
  24. TORSEMIDE [Concomitant]
  25. TAMSULOSIN HCL [Concomitant]
     Dates: start: 20060601
  26. BEPANTHEN [Concomitant]
     Dates: start: 20080901
  27. NASIC [Concomitant]
     Dates: start: 20040101
  28. LUCENTIS [Suspect]
     Indication: AGE-RELATED MACULAR DEGENERATION
     Route: 050
     Dates: start: 20070319
  29. LUCENTIS [Suspect]
     Route: 050
     Dates: start: 20090108
  30. LUCENTIS [Suspect]
     Route: 050
     Dates: start: 20091105
  31. SPIRIVA [Concomitant]
     Dates: start: 20080501

REACTIONS (4)
  - VISUAL ACUITY REDUCED [None]
  - INAPPROPRIATE SCHEDULE OF DRUG ADMINISTRATION [None]
  - NASAL DISORDER [None]
  - SLEEP APNOEA SYNDROME [None]
